FAERS Safety Report 5016141-4 (Version None)
Quarter: 2006Q2

REPORT INFORMATION
  Report Type: 
  Country: None (occurrence: None)
  Receive Date: 20060414
  Receipt Date: 20060206
  Transmission Date: 20061013
  Serious: No
  Sender: FDA-Public Use
  Company Number: 2006SP000649

PATIENT
  Age: 53 Year
  Sex: Female
  Weight: 97.5234 kg

DRUGS (5)
  1. LUNESTA [Suspect]
     Indication: INSOMNIA
     Dosage: 2 MG;PRN;ORAL
     Route: 048
     Dates: start: 20060101
  2. CELEBREX [Concomitant]
  3. NEXIUM [Concomitant]
  4. REMERON [Concomitant]
  5. AMBIEN [Concomitant]

REACTIONS (2)
  - DYSGEUSIA [None]
  - SOMNOLENCE [None]
